FAERS Safety Report 9013730 (Version 1)
Quarter: 2013Q1

REPORT INFORMATION
  Report Type: Spontaneous
  Country: US (occurrence: None)
  Receive Date: 20130108
  Receipt Date: 20130108
  Transmission Date: 20140127
  Serious: No
  Sender: FDA-Public Use
  Company Number: None

PATIENT
  Age: 52 Year
  Sex: Male

DRUGS (1)
  1. STELARA [Suspect]
     Dosage: 90MG Q12WEEKS SUBQ
     Route: 058
     Dates: start: 20120409

REACTIONS (1)
  - Renal cancer [None]
